FAERS Safety Report 6008228-4 (Version None)
Quarter: 2008Q4

REPORT INFORMATION
  Report Type: 
  Country: None (occurrence: None)
  Receive Date: 20081217
  Receipt Date: 20080730
  Transmission Date: 20090506
  Serious: No
  Sender: FDA-Public Use
  Company Number: US-ASTRAZENECA-2008UW15688

PATIENT
  Age: 39 Year
  Sex: Female
  Weight: 101.6 kg

DRUGS (6)
  1. CRESTOR [Suspect]
     Indication: BLOOD CHOLESTEROL INCREASED
     Route: 048
     Dates: start: 20080723, end: 20080728
  2. VICODIN [Concomitant]
     Dosage: 7.5/750
  3. MAXZIDE [Concomitant]
  4. FEXOFENADINE [Concomitant]
  5. LOTREL [Concomitant]
     Dosage: 5/20
  6. KLONOPIN [Concomitant]

REACTIONS (3)
  - ANOREXIA [None]
  - ASTHENIA [None]
  - GASTRIC DISORDER [None]
